FAERS Safety Report 8734104 (Version 2)
Quarter: 2012Q4

REPORT INFORMATION
  Report Type: 
  Country: US (occurrence: US)
  Receive Date: 20120821
  Receipt Date: 20121010
  Transmission Date: 20130627
  Serious: No
  Sender: FDA-Public Use
  Company Number: US-ASTRAZENECA-2012SE56900

PATIENT
  Age: 82 Year
  Sex: Female

DRUGS (4)
  1. TOPROL XL [Suspect]
     Route: 048
  2. NORVASC [Concomitant]
  3. DIGOXIN [Concomitant]
  4. LISINOPRIL [Concomitant]

REACTIONS (1)
  - Blood pressure inadequately controlled [Unknown]
